FAERS Safety Report 22187180 (Version 2)
Quarter: 2023Q2

REPORT INFORMATION
  Report Type: Spontaneous
  Country: IN (occurrence: IN)
  Receive Date: 20230407
  Receipt Date: 20230606
  Transmission Date: 20230721
  Serious: Yes (Death, Hospitalization, Other)
  Sender: FDA-Public Use
  Company Number: IN-PFIZER INC-PV202300063702

PATIENT
  Age: 65 Year
  Sex: Female

DRUGS (1)
  1. PALBOCICLIB [Suspect]
     Active Substance: PALBOCICLIB
     Dosage: UNK
     Route: 048

REACTIONS (3)
  - Death [Fatal]
  - Blood calcium abnormal [Unknown]
  - Malnutrition [Unknown]

NARRATIVE: CASE EVENT DATE: 20230511
